FAERS Safety Report 4667705-9 (Version None)
Quarter: 2005Q2

REPORT INFORMATION
  Report Type: 
  Country: None (occurrence: None)
  Receive Date: 20050519
  Receipt Date: 20050519
  Transmission Date: 20051028
  Serious: Yes (Life-Threatening, Other)
  Sender: FDA-Public Use
  Company Number: None

PATIENT
  Sex: Male
  Weight: 111.1313 kg

DRUGS (5)
  1. DEPAKOTE ER [Suspect]
     Indication: BIPOLAR DISORDER
     Dosage: 1500MG   QHS    ORAL
     Route: 048
     Dates: start: 19980301, end: 20020601
  2. DEPAKOTE ER [Suspect]
     Indication: POST-TRAUMATIC STRESS DISORDER
     Dosage: 1500MG   QHS    ORAL
     Route: 048
     Dates: start: 19980301, end: 20020601
  3. METHADOSE [Concomitant]
  4. XANAX [Concomitant]
  5. LACTULOSE [Concomitant]

REACTIONS (8)
  - ALANINE AMINOTRANSFERASE INCREASED [None]
  - CONFUSIONAL STATE [None]
  - HYPERAMMONAEMIA [None]
  - INTERNATIONAL NORMALISED RATIO ABNORMAL [None]
  - LETHARGY [None]
  - POSTURING [None]
  - SPEECH DISORDER [None]
  - TREMOR [None]
